FAERS Safety Report 19435585 (Version 2)
Quarter: 2021Q3

REPORT INFORMATION
  Report Type: Spontaneous
  Country: JP (occurrence: JP)
  Receive Date: 20210618
  Receipt Date: 20210726
  Transmission Date: 20211014
  Serious: Yes (Congenital Anomaly)
  Sender: FDA-Public Use
  Company Number: JP-ASTELLAS-2021JP011432

PATIENT
  Age: 0 Year
  Sex: Female
  Weight: 3 kg

DRUGS (6)
  1. AZULFIDINE EN?TABS [Concomitant]
     Active Substance: SULFASALAZINE
     Indication: FOETAL EXPOSURE DURING PREGNANCY
     Route: 064
     Dates: end: 20200822
  2. AZULFIDINE EN?TABS [Concomitant]
     Active Substance: SULFASALAZINE
     Indication: EXPOSURE VIA BREAST MILK
     Route: 063
     Dates: start: 20200823
  3. ACTEMRA [Concomitant]
     Active Substance: TOCILIZUMAB
     Indication: EXPOSURE VIA BREAST MILK
     Route: 063
     Dates: start: 2020
  4. PROGRAF [Suspect]
     Active Substance: TACROLIMUS
     Indication: FOETAL EXPOSURE DURING PREGNANCY
     Route: 064
     Dates: end: 20200822
  5. PROGRAF [Suspect]
     Active Substance: TACROLIMUS
     Indication: EXPOSURE VIA BREAST MILK
     Route: 063
     Dates: start: 20200823
  6. ACTEMRA [Concomitant]
     Active Substance: TOCILIZUMAB
     Indication: FOETAL EXPOSURE DURING PREGNANCY
     Route: 064
     Dates: end: 2020

REACTIONS (3)
  - Foetal exposure during pregnancy [Unknown]
  - Atrial septal defect [Recovered/Resolved]
  - Exposure via breast milk [Unknown]

NARRATIVE: CASE EVENT DATE: 2020
